FAERS Safety Report 10072581 (Version 1)
Quarter: 2014Q2

REPORT INFORMATION
  Report Type: Spontaneous
  Country: US (occurrence: None)
  Receive Date: 20140410
  Receipt Date: 20140410
  Transmission Date: 20141212
  Serious: Yes (Hospitalization)
  Sender: FDA-Public Use
  Company Number: None

PATIENT
  Age: 55 Year
  Sex: Male
  Weight: 93.1 kg

DRUGS (2)
  1. CODEINE/GUAIFENESIN [Suspect]
     Indication: COUGH
     Route: 048
     Dates: start: 20140319, end: 20140323
  2. VENLAFAXINE [Suspect]
     Indication: DEPRESSION
     Route: 048
     Dates: start: 20110419, end: 20140323

REACTIONS (12)
  - Mental status changes [None]
  - Overdose [None]
  - Miosis [None]
  - Drug screen positive [None]
  - Respiratory rate decreased [None]
  - Convulsion [None]
  - Postictal state [None]
  - Hypercapnia [None]
  - Sepsis [None]
  - Serotonin syndrome [None]
  - Hyperreflexia [None]
  - Hyperhidrosis [None]
